FAERS Safety Report 7378039-6 (Version None)
Quarter: 2011Q1

REPORT INFORMATION
  Report Type: 
  Country: None (occurrence: None)
  Receive Date: 20110328
  Receipt Date: 20110323
  Transmission Date: 20110831
  Serious: Yes (Hospitalization)
  Sender: FDA-Public Use
  Company Number: GB-PFIZER INC-2011065542

PATIENT
  Age: 58 Year
  Sex: Male

DRUGS (3)
  1. INSULIN [Concomitant]
     Indication: DIABETES MELLITUS
     Dosage: UNK
  2. ATORVASTATIN CALCIUM [Suspect]
     Dosage: UNK
  3. FUSIDIC ACID [Interacting]
     Indication: TOE AMPUTATION
     Dosage: UNK

REACTIONS (6)
  - RHABDOMYOLYSIS [None]
  - DIALYSIS [None]
  - DRUG INTERACTION [None]
  - RESPIRATORY DISTRESS [None]
  - RENAL FAILURE ACUTE [None]
  - DYSPHAGIA [None]
